FAERS Safety Report 8167499 (Version 4)
Quarter: 2014Q1

REPORT INFORMATION
  Report Type: Spontaneous
  Country: US (occurrence: US)
  Receive Date: 20111004
  Receipt Date: 20140313
  Transmission Date: 20141002
  Serious: Yes (Hospitalization)
  Sender: FDA-Public Use
  Company Number: US-BAYER-2011-091935

PATIENT
  Age: 22 Year
  Sex: Female
  Weight: 61 kg

DRUGS (5)
  1. YAZ [Suspect]
     Indication: CONTRACEPTION
     Dosage: UNK
     Dates: start: 200601, end: 200812
  2. YAZ [Suspect]
     Indication: PREMENSTRUAL SYNDROME
  3. YAZ [Suspect]
     Indication: PREMENSTRUAL DYSPHORIC DISORDER
  4. PERCOCET [Concomitant]
     Indication: PAIN
     Dosage: AS NEEDED
  5. AMOXICILLIN W/CLAVULANIC ACID [Concomitant]
     Dosage: 875-125

REACTIONS (2)
  - Cholecystectomy [None]
  - Cholecystitis chronic [None]
